FAERS Safety Report 17364836 (Version 4)
Quarter: 2020Q3

REPORT INFORMATION
  Report Type: Report from Study
  Country: US (occurrence: US)
  Receive Date: 20200204
  Receipt Date: 20200723
  Transmission Date: 20201102
  Serious: Yes (Hospitalization, Other)
  Sender: FDA-Public Use
  Company Number: NVSC2020US025458

PATIENT
  Age: 67 Year
  Sex: Female
  Weight: 72.4 kg

DRUGS (2)
  1. ZORTRESS [Suspect]
     Active Substance: EVEROLIMUS
     Indication: CHRONIC LYMPHOCYTIC LEUKAEMIA
     Dosage: 5 MG, QD
     Route: 048
     Dates: start: 20190710, end: 20200123
  2. POMALIDOMIDE [Suspect]
     Active Substance: POMALIDOMIDE
     Indication: CHRONIC LYMPHOCYTIC LEUKAEMIA
     Dosage: 2 MG, QD
     Route: 048
     Dates: start: 20190710, end: 20200123

REACTIONS (7)
  - Upper respiratory tract infection [Unknown]
  - Febrile neutropenia [Unknown]
  - Pneumonia [Unknown]
  - Product use in unapproved indication [Unknown]
  - Febrile neutropenia [Not Recovered/Not Resolved]
  - Pyrexia [Unknown]
  - Hyponatraemia [Unknown]

NARRATIVE: CASE EVENT DATE: 20190710
